FAERS Safety Report 8129235-1 (Version None)
Quarter: 2011Q4

REPORT INFORMATION
  Report Type: 
  Country: None (occurrence: None)
  Receive Date: 20111227
  Receipt Date: 20111031
  Transmission Date: 20120403
  Serious: No
  Sender: FDA-Public Use
  Company Number: PHHY2011US54723

PATIENT
  Age: 32 Year
  Sex: Male

DRUGS (2)
  1. GILENYA [Suspect]
     Indication: MULTIPLE SCLEROSIS
     Dosage: 0.5 MG, DAILY, ORAL
     Route: 048
     Dates: start: 20110509
  2. MERCAPTOPURINE [Suspect]
     Dosage: 50 MG, QD

REACTIONS (3)
  - WHITE BLOOD CELL COUNT DECREASED [None]
  - EXPOSURE TO TOXIC AGENT [None]
  - CHEST DISCOMFORT [None]
